FAERS Safety Report 6048239-6 (Version None)
Quarter: 2009Q1

REPORT INFORMATION
  Report Type: 
  Country: None (occurrence: None)
  Receive Date: 20090123
  Receipt Date: 20090120
  Transmission Date: 20090719
  Serious: Yes (Death, Life-Threatening)
  Sender: FDA-Public Use
  Company Number: UA-BRISTOL-MYERS SQUIBB COMPANY-14387351

PATIENT
  Age: 69 Year
  Sex: Male

DRUGS (7)
  1. CARBOPLATIN [Suspect]
     Indication: NON-SMALL CELL LUNG CANCER
     Route: 042
     Dates: start: 20081013, end: 20081013
  2. TAXOL [Suspect]
     Indication: NON-SMALL CELL LUNG CANCER
     Route: 042
     Dates: start: 20081013, end: 20081013
  3. DEXAMETHASONE [Concomitant]
     Dosage: ALSO ON 20-OCT-2008
     Route: 042
     Dates: start: 20081013, end: 20081013
  4. ASCORBIC ACID [Concomitant]
     Route: 042
     Dates: start: 20081020, end: 20081020
  5. DIPHENHYDRAMINE HCL [Concomitant]
     Dates: start: 20081013, end: 20081013
  6. ONDANSETRON HYDROCHLORIDE [Concomitant]
     Route: 042
     Dates: start: 20081013, end: 20081013
  7. RANITIDINE [Concomitant]
     Route: 042
     Dates: start: 20081013, end: 20081013

REACTIONS (1)
  - RESPIRATORY FAILURE [None]
